FAERS Safety Report 7642522-6 (Version None)
Quarter: 2011Q3

REPORT INFORMATION
  Report Type: 
  Country: None (occurrence: None)
  Receive Date: 20110728
  Receipt Date: 20110718
  Transmission Date: 20111222
  Serious: Yes (Death)
  Sender: FDA-Public Use
  Company Number: US-TYCO HEALTHCARE/MALLINCKRODT-T201101400

PATIENT
  Sex: Male

DRUGS (24)
  1. ALPRAZOLAM [Concomitant]
     Indication: ANXIETY
     Dosage: 0.5 - 1.0 MG Q6 HR AS NEEDED
     Route: 048
  2. DILAUDID [Concomitant]
     Indication: BREAKTHROUGH PAIN
     Dosage: 4 MG Q6 AS NEEDED
     Route: 048
  3. POTASSIUM CHLORIDE [Concomitant]
     Dosage: 20 MEQ, UNK
  4. ANTIBIOTICS [Concomitant]
  5. TRAZODONE HCL [Concomitant]
     Indication: INSOMNIA
     Dosage: 100 MG, AT NIGHT AS NEEDED
     Route: 048
  6. METHOTREXATE [Concomitant]
     Dosage: 7 - 2.5 MG TABS ONCE A WEEK
     Route: 048
  7. SPIRIVA [Concomitant]
     Dosage: 18 MCG
  8. BENZONATATE [Concomitant]
     Indication: COUGH
     Dosage: 100 MG TID AS NEEDED
     Route: 048
  9. NITROSTAT [Concomitant]
     Indication: CHEST PAIN
     Dosage: 0.4 MG AS NEEDED
  10. FLONASE [Concomitant]
  11. ZAROXOLYN [Concomitant]
  12. PREDNISONE [Concomitant]
     Dosage: 10 MG QD
     Route: 048
  13. ZANAFLEX [Concomitant]
     Indication: MUSCLE SPASMS
     Dosage: 1-2 MG IN MORNING AND NIGHT
     Route: 048
  14. LISINOPRIL [Concomitant]
     Dosage: 20 MG QD
     Route: 048
  15. EXALGO [Suspect]
     Dosage: 4 - 16 MG  TABS AT BEDTIME
     Route: 048
     Dates: start: 20100916
  16. METOLAZONE [Concomitant]
     Dosage: 10 MG, UNK
  17. FUROSEMIDE [Concomitant]
     Dosage: 40 MG, UNK
  18. COUMADIN [Concomitant]
  19. FLEXERIL [Concomitant]
     Indication: MUSCLE SPASMS
     Dosage: 10 MG TID
     Route: 048
  20. HYDROCHLOROTHIAZIDE [Concomitant]
     Dosage: 12.5 MG IN MORNING
     Route: 048
  21. DURAGESIC-100 [Concomitant]
     Dosage: 100 MCG/HR Q48 HR
  22. EXALGO [Suspect]
     Indication: PAIN
     Dosage: 6 - 16 MG TABS AT BEDTIME
     Route: 048
     Dates: start: 20110623, end: 20110624
  23. EXALGO [Suspect]
     Dosage: 5 - 16 MG TABS AT BEDTIME
     Route: 048
     Dates: start: 20101227, end: 20110623
  24. EXALGO [Suspect]
     Dosage: 2 TO 3 - 16 MG TABS AT BEDTIME
     Route: 048
     Dates: start: 20100813

REACTIONS (4)
  - CARDIO-RESPIRATORY ARREST [None]
  - PULMONARY INFARCTION [None]
  - RENAL FAILURE ACUTE [None]
  - OEDEMA [None]
